FAERS Safety Report 11394815 (Version 1)
Quarter: 2015Q3

REPORT INFORMATION
  Report Type: Spontaneous
  Country: US (occurrence: None)
  Receive Date: 20150817
  Receipt Date: 20150817
  Transmission Date: 20151125
  Serious: Yes (Hospitalization)
  Sender: FDA-Public Use
  Company Number: KAD201508-002603

PATIENT
  Age: 63 Year
  Sex: Female
  Weight: 59.87 kg

DRUGS (11)
  1. RIBAVIRIN. [Suspect]
     Active Substance: RIBAVIRIN
     Indication: HEPATITIS C
     Dosage: TABLET, 2 IN AM, AND 3 IN PM (1 IN 12 HR), ORAL
     Route: 048
     Dates: start: 20150622, end: 20150801
  2. MORPHINE [Concomitant]
     Active Substance: MORPHINE
  3. MAGNESIUM (ALUDROX) (MAGNESIUM HYDROXIDE, ALUMINIUM HYDROXIDE) (MAGNESIUM HYDROXIDE, ALUMINIUM HYDROXIDE) [Concomitant]
  4. EFFEXOR [Concomitant]
     Active Substance: VENLAFAXINE HYDROCHLORIDE
  5. CYCLOBENZAPRINE (OXYCODONE) [Concomitant]
  6. VIEKIRA PAK [Suspect]
     Active Substance: DASABUVIR\OMBITASVIR\PARITAPREVIR\RITONAVIR
     Indication: HEPATITIS C
     Dosage: 3 TABLETS, AND 1 TABLET IN PM, 1 IN 12 HR, ORAL
     Route: 048
     Dates: start: 20150622, end: 20150801
  7. OXYCODONE [Concomitant]
     Active Substance: OXYCODONE
  8. VIEKIRA PAK [Suspect]
     Active Substance: DASABUVIR\OMBITASVIR\PARITAPREVIR\RITONAVIR
     Indication: HEPATIC CIRRHOSIS
     Dosage: 3 TABLETS, AND 1 TABLET IN PM, 1 IN 12 HR, ORAL
     Route: 048
     Dates: start: 20150622, end: 20150801
  9. NICORETTE [Concomitant]
     Active Substance: NICOTINE
  10. RIBAVIRIN. [Suspect]
     Active Substance: RIBAVIRIN
     Indication: HEPATIC CIRRHOSIS
     Dosage: TABLET, 2 IN AM, AND 3 IN PM (1 IN 12 HR), ORAL
     Route: 048
     Dates: start: 20150622, end: 20150801
  11. SOMA [Concomitant]
     Active Substance: CARISOPRODOL

REACTIONS (3)
  - Musculoskeletal stiffness [None]
  - Cervical vertebral fracture [None]
  - Hyperbilirubinaemia [None]

NARRATIVE: CASE EVENT DATE: 201507
